FAERS Safety Report 5222418-X (Version None)
Quarter: 2007Q1

REPORT INFORMATION
  Report Type: 
  Country: None (occurrence: None)
  Receive Date: 20070129
  Receipt Date: 20061120
  Transmission Date: 20070707
  Serious: No
  Sender: FDA-Public Use
  Company Number: US-BRISTOL-MYERS SQUIBB COMPANY-13584792

PATIENT
  Age: 31 Year
  Sex: Female
  Weight: 113 kg

DRUGS (7)
  1. TRAZODONE HCL [Suspect]
     Indication: DEPRESSION
  2. CENESTIN [Concomitant]
  3. PREVACID [Concomitant]
  4. SINGULAIR [Concomitant]
     Dates: start: 19980101
  5. REMERON [Concomitant]
  6. LASIX [Concomitant]
  7. EFFEXOR XR [Concomitant]
     Dates: start: 19980101

REACTIONS (2)
  - HEADACHE [None]
  - TINNITUS [None]
